FAERS Safety Report 17621306 (Version 1)
Quarter: 2020Q2

REPORT INFORMATION
  Report Type: Spontaneous
  Country: US (occurrence: US)
  Receive Date: 20200403
  Receipt Date: 20200403
  Transmission Date: 20200713
  Serious: Yes (Hospitalization)
  Sender: FDA-Public Use
  Company Number: US-EMERGENT BIOSOLUTIONS-20000262LT

PATIENT
  Age: 27 Year
  Sex: Male

DRUGS (2)
  1. HEROIN [Suspect]
     Active Substance: DIAMORPHINE
     Dosage: UNK
     Route: 065
  2. NARCAN [Suspect]
     Active Substance: NALOXONE HYDROCHLORIDE
     Indication: OVERDOSE
     Dosage: UNK
     Route: 065

REACTIONS (1)
  - Drug withdrawal syndrome [Unknown]
